FAERS Safety Report 15516211 (Version 3)
Quarter: 2019Q1

REPORT INFORMATION
  Report Type: Report from Study
  Country: US (occurrence: US)
  Receive Date: 20181017
  Receipt Date: 20190123
  Transmission Date: 20190417
  Serious: Yes (Other)
  Sender: FDA-Public Use
  Company Number: US-AMGEN-USASL2018141205

PATIENT
  Age: 57 Year
  Sex: Female

DRUGS (1)
  1. AIMOVIG [Suspect]
     Active Substance: ERENUMAB-AOOE
     Indication: MIGRAINE WITH AURA
     Dosage: 70 MG, QMO
     Route: 065
     Dates: start: 20180725

REACTIONS (6)
  - Depression [Unknown]
  - Muscle spasms [Unknown]
  - Lethargy [Unknown]
  - Arthralgia [Unknown]
  - Mood swings [Unknown]
  - Anxiety [Unknown]

NARRATIVE: CASE EVENT DATE: 2018
